FAERS Safety Report 6006834-4 (Version None)
Quarter: 2008Q4

REPORT INFORMATION
  Report Type: 
  Country: None (occurrence: None)
  Receive Date: 20081217
  Receipt Date: 20080208
  Transmission Date: 20090506
  Serious: No
  Sender: FDA-Public Use
  Company Number: US-ASTRAZENECA-2007UW24701

PATIENT
  Age: 76 Year
  Sex: Female
  Weight: 55.3 kg

DRUGS (7)
  1. CRESTOR [Suspect]
     Route: 048
     Dates: start: 20071001
  2. ZILATAN [Concomitant]
  3. EVISTA [Concomitant]
  4. ACTOS [Concomitant]
  5. CALCIUM [Concomitant]
  6. VITAMIN D [Concomitant]
  7. ASCORBIC ACID [Concomitant]

REACTIONS (2)
  - FATIGUE [None]
  - WEIGHT INCREASED [None]
